FAERS Safety Report 16686048 (Version 2)
Quarter: 2019Q3

REPORT INFORMATION
  Report Type: Spontaneous
  Country: RU (occurrence: RU)
  Receive Date: 20190809
  Receipt Date: 20190822
  Transmission Date: 20191004
  Serious: Yes (Death)
  Sender: FDA-Public Use
  Company Number: RU-ABBVIE-19K-251-2882660-00

PATIENT
  Age: 47 Year
  Sex: Female

DRUGS (1)
  1. VENCLEXTA [Suspect]
     Active Substance: VENETOCLAX
     Indication: CHRONIC LYMPHOCYTIC LEUKAEMIA
     Route: 048
     Dates: start: 20180718, end: 20180722

REACTIONS (4)
  - Nervous system disorder [Fatal]
  - Chronic lymphocytic leukaemia [Fatal]
  - Drug ineffective [Not Recovered/Not Resolved]
  - Richter^s syndrome [Fatal]
